FAERS Safety Report 4524197-8 (Version None)
Quarter: 2004Q4

REPORT INFORMATION
  Report Type: 
  Country: None (occurrence: None)
  Receive Date: 20041209
  Receipt Date: 20041129
  Transmission Date: 20050328
  Serious: Yes (Disabling, Other)
  Sender: FDA-Public Use
  Company Number: 2004100570

PATIENT
  Age: 36 Year
  Sex: Female

DRUGS (1)
  1. PSEUDOEPHEDRINE (PSEUDOEPHEDRINE) [Suspect]
     Dosage: 300 MG ONCE, ORAL
     Route: 048

REACTIONS (2)
  - BLOOD PRESSURE DIASTOLIC INCREASED [None]
  - HAEMORRHAGIC STROKE [None]
